FAERS Safety Report 6373682-5 (Version None)
Quarter: 2009Q3

REPORT INFORMATION
  Report Type: 
  Country: None (occurrence: None)
  Receive Date: 20090924
  Receipt Date: 20090617
  Transmission Date: 20100115
  Serious: Yes (Other)
  Sender: FDA-Public Use
  Company Number: US-ASTRAZENECA-2009UW10794

PATIENT
  Age: 81 Year
  Sex: Female

DRUGS (4)
  1. SEROQUEL [Suspect]
     Indication: AGITATION
     Route: 048
     Dates: start: 20090106, end: 20090427
  2. FLUOXETINE [Concomitant]
     Indication: DEPRESSION
     Route: 048
  3. FENTANYL [Concomitant]
     Indication: PAIN
     Route: 065
  4. ZOLPIDEM [Concomitant]
     Indication: SLEEP DISORDER THERAPY
     Route: 048

REACTIONS (3)
  - DYSTONIA [None]
  - MYOCLONUS [None]
  - TARDIVE DYSKINESIA [None]
